FAERS Safety Report 11989954 (Version 1)
Quarter: 2016Q1

REPORT INFORMATION
  Report Type: Spontaneous
  Country: US (occurrence: US)
  Receive Date: 20160202
  Receipt Date: 20160202
  Transmission Date: 20160526
  Serious: No
  Sender: FDA-Public Use
  Company Number: US-ROCHE-1638640

PATIENT
  Age: 17 Year
  Sex: Female
  Weight: 42.7 kg

DRUGS (2)
  1. NUTROPIN [Suspect]
     Active Substance: SOMATROPIN
     Indication: DWARFISM
     Route: 058
     Dates: start: 20150826, end: 20150909
  2. NUTROPIN [Suspect]
     Active Substance: SOMATROPIN
     Indication: GROWTH HORMONE DEFICIENCY
     Route: 065

REACTIONS (2)
  - Eye swelling [Recovered/Resolved]
  - Eye swelling [Unknown]

NARRATIVE: CASE EVENT DATE: 20150901
